FAERS Safety Report 8093579-2 (Version None)
Quarter: 2012Q1

REPORT INFORMATION
  Report Type: 
  Country: None (occurrence: None)
  Receive Date: 20120129
  Receipt Date: 20110921
  Transmission Date: 20120608
  Serious: No
  Sender: FDA-Public Use
  Company Number: US-ABBOTT-11P-163-0856818-00

PATIENT
  Age: 71 Year
  Sex: Female

DRUGS (10)
  1. DILTIAZEM HCL [Concomitant]
     Indication: BENIGN INTRACRANIAL HYPERTENSION
  2. FOLIC ACID [Concomitant]
     Indication: RHEUMATOID ARTHRITIS
  3. DIGOXIN [Concomitant]
     Indication: ATRIAL FIBRILLATION
  4. METHOTREXATE [Concomitant]
     Indication: RHEUMATOID ARTHRITIS
  5. MOBIC [Concomitant]
     Indication: PAIN
  6. ZOCOR [Concomitant]
     Indication: PRODUCT USED FOR UNKNOWN INDICATION
  7. NEXIUM [Concomitant]
     Indication: GASTROOESOPHAGEAL REFLUX DISEASE
  8. HUMIRA [Suspect]
     Indication: RHEUMATOID ARTHRITIS
     Dates: start: 20110701
  9. COUMADIN [Concomitant]
     Indication: CARDIAC DISORDER
     Dosage: 1 1/2 TABS 2 DAYS A WEEK, 1 TAB THE OTHER DAYS
  10. FLEXERIL [Concomitant]
     Indication: UNEVALUABLE EVENT
     Dosage: AT BEDTIME

REACTIONS (5)
  - PULMONARY CONGESTION [None]
  - OEDEMA PERIPHERAL [None]
  - BONE PAIN [None]
  - LARYNGITIS [None]
  - COUGH [None]
